FAERS Safety Report 20034791 (Version 1)
Quarter: 2021Q4

REPORT INFORMATION
  Report Type: Spontaneous
  Country: CN (occurrence: CN)
  Receive Date: 20211104
  Receipt Date: 20211104
  Transmission Date: 20220303
  Serious: Yes (Other)
  Sender: FDA-Public Use
  Company Number: CN-PFIZER INC-202101430201

PATIENT
  Age: 19 Month
  Sex: Female
  Weight: 10.5 kg

DRUGS (2)
  1. METHYLPREDNISOLONE SODIUM SUCCINATE [Suspect]
     Active Substance: METHYLPREDNISOLONE SODIUM SUCCINATE
     Indication: Respiratory disorder
     Dosage: 20 MG, 3X/DAY (ONCE EVERY 8 HOURS)
     Route: 041
     Dates: start: 20211011, end: 20211011
  2. DEXTROSE [Concomitant]
     Active Substance: DEXTROSE
     Indication: Vehicle solution use
     Dosage: 30 ML, 3X/DAY (ONCE EVERY 8 HOURS)
     Route: 041
     Dates: start: 20211011, end: 20211011

REACTIONS (6)
  - Rash [Recovering/Resolving]
  - Pruritus [Recovering/Resolving]
  - Infantile vomiting [Recovering/Resolving]
  - Urticaria [Recovering/Resolving]
  - Tachypnoea [Recovering/Resolving]
  - Off label use [Unknown]

NARRATIVE: CASE EVENT DATE: 20211011
